FAERS Safety Report 6012365-8 (Version None)
Quarter: 2008Q4

REPORT INFORMATION
  Report Type: 
  Country: None (occurrence: None)
  Receive Date: 20081218
  Receipt Date: 20080915
  Transmission Date: 20090506
  Serious: No
  Sender: FDA-Public Use
  Company Number: US-ASTRAZENECA-2008UW19076

PATIENT
  Age: 12 Year
  Sex: Female

DRUGS (6)
  1. SYMBICORT [Suspect]
     Indication: COUGH
     Route: 055
     Dates: start: 20080401
  2. SYMBICORT [Suspect]
     Dosage: 160/4.5 MCG, 2 PUFFS TWICE DAILY
     Route: 055
     Dates: start: 20080901
  3. ASTELIN [Concomitant]
  4. VERAMYST [Concomitant]
  5. AUGMENTIN '125' [Concomitant]
  6. ZITHROMAX [Concomitant]

REACTIONS (3)
  - CHEST PAIN [None]
  - COUGH [None]
  - OROPHARYNGEAL PAIN [None]
